FAERS Safety Report 6017303-X (Version None)
Quarter: 2008Q4

REPORT INFORMATION
  Report Type: 
  Country: None (occurrence: None)
  Receive Date: 20081219
  Receipt Date: 20081203
  Transmission Date: 20090506
  Serious: Yes (Other)
  Sender: FDA-Public Use
  Company Number: 8040280

PATIENT
  Age: 51 Year
  Sex: Male

DRUGS (1)
  1. KEPPRA [Suspect]
     Dosage: 500 MG 2/D
     Dates: start: 20080301

REACTIONS (1)
  - THROMBOCYTOPENIA [None]
